FAERS Safety Report 13343868 (Version 1)
Quarter: 2017Q1

REPORT INFORMATION
  Report Type: Spontaneous
  Country: FR (occurrence: FR)
  Receive Date: 20170316
  Receipt Date: 20170316
  Transmission Date: 20170428
  Serious: Yes (Other)
  Sender: FDA-Public Use
  Company Number: FR-009507513-1703FRA003646

PATIENT
  Age: 25 Year
  Sex: Female

DRUGS (1)
  1. PUREGON [Suspect]
     Active Substance: FOLLITROPIN
     Indication: OVULATION INDUCTION
     Dosage: 500 IU, UNK
     Route: 058
     Dates: start: 20170117, end: 20170117

REACTIONS (2)
  - Failed in vitro fertilisation [Unknown]
  - Ovarian hyperstimulation syndrome [Unknown]

NARRATIVE: CASE EVENT DATE: 201701
